APPROVED DRUG PRODUCT: FLUOXETINE HYDROCHLORIDE
Active Ingredient: FLUOXETINE HYDROCHLORIDE
Strength: EQ 20MG BASE/5ML
Dosage Form/Route: SOLUTION;ORAL
Application: A076458 | Product #001
Applicant: CHARTWELL MOLECULAR HOLDINGS LLC
Approved: May 14, 2004 | RLD: No | RS: No | Type: DISCN